FAERS Safety Report 25745939 (Version 2)
Quarter: 2025Q3

REPORT INFORMATION
  Report Type: Spontaneous
  Country: EU (occurrence: EU)
  Receive Date: 20250901
  Receipt Date: 20250923
  Transmission Date: 20251021
  Serious: Yes (Other)
  Sender: AUROBINDO
  Company Number: EU-CZSUKL-25001527

PATIENT
  Sex: Female

DRUGS (2)
  1. BISOPROLOL [Suspect]
     Active Substance: BISOPROLOL
     Indication: Palpitations
     Route: 065
     Dates: start: 202203, end: 2022
  2. COMIRNATY (TOZINAMERAN) [Suspect]
     Active Substance: TOZINAMERAN
     Indication: COVID-19 immunisation
     Dosage: 1 DOSAGE FORM, ONCE A DAY(DOSE 3)
     Route: 030
     Dates: start: 202201, end: 202201

REACTIONS (6)
  - Deafness [Not Recovered/Not Resolved]
  - Palpitations [Recovered/Resolved]
  - Heart rate abnormal [Recovered/Resolved]
  - Tinnitus [Not Recovered/Not Resolved]
  - Autonomic nervous system imbalance [Recovered/Resolved]
  - Blood pressure decreased [Recovered/Resolved]

NARRATIVE: CASE EVENT DATE: 20220327
